FAERS Safety Report 15077636 (Version 1)
Quarter: 2018Q2

REPORT INFORMATION
  Report Type: Spontaneous
  Country: US (occurrence: US)
  Receive Date: 20180607
  Receipt Date: 20180607
  Transmission Date: 20180711
  Serious: Yes (Death)
  Sender: FDA-Public Use
  Company Number: None

PATIENT
  Age: 53 Year
  Sex: Female

DRUGS (17)
  1. REBIF [Suspect]
     Active Substance: INTERFERON BETA-1A
     Indication: MULTIPLE SCLEROSIS
     Route: 058
     Dates: start: 20161208, end: 20180516
  2. FUROSEMIDE. [Concomitant]
     Active Substance: FUROSEMIDE
  3. SEROQUEL [Concomitant]
     Active Substance: QUETIAPINE FUMARATE
  4. BACLOFEN. [Concomitant]
     Active Substance: BACLOFEN
  5. DEPO-PROVERA INJ [Concomitant]
  6. MELATONIN [Concomitant]
     Active Substance: MELATONIN
  7. WOMENS ONE [Concomitant]
  8. ALPRAZOLAM. [Concomitant]
     Active Substance: ALPRAZOLAM
  9. LOSARTAN POT [Concomitant]
     Active Substance: LOSARTAN POTASSIUM
  10. SPIRONOLACT [Concomitant]
     Active Substance: SPIRONOLACTONE
  11. TRAMADOL. [Concomitant]
     Active Substance: TRAMADOL
  12. NEURONTIN [Concomitant]
     Active Substance: GABAPENTIN
  13. KLONOPIN [Concomitant]
     Active Substance: CLONAZEPAM
  14. REXULTI [Concomitant]
     Active Substance: BREXPIPRAZOLE
  15. VITAMIN B12 [Concomitant]
     Active Substance: CYANOCOBALAMIN
  16. EXCEDRIN [Concomitant]
     Active Substance: ACETAMINOPHEN\ASPIRIN\CAFFEINE
  17. KLOR-CON [Concomitant]
     Active Substance: POTASSIUM CHLORIDE

REACTIONS (1)
  - Death [None]

NARRATIVE: CASE EVENT DATE: 20180516
